FAERS Safety Report 12212434 (Version 1)
Quarter: 2016Q1

REPORT INFORMATION
  Report Type: Report from Study
  Country: US (occurrence: US)
  Receive Date: 20160326
  Receipt Date: 20160326
  Transmission Date: 20160526
  Serious: Yes (Hospitalization)
  Sender: FDA-Public Use
  Company Number: US-ABBVIE-16K-163-1588335-00

PATIENT
  Sex: Female

DRUGS (1)
  1. HUMIRA [Suspect]
     Active Substance: ADALIMUMAB
     Indication: CROHN^S DISEASE
     Route: 058
     Dates: start: 2014

REACTIONS (2)
  - Device failure [Recovered/Resolved]
  - Abdominal hernia [Recovered/Resolved]

NARRATIVE: CASE EVENT DATE: 2015
